FAERS Safety Report 7310762-1 (Version None)
Quarter: 2011Q1

REPORT INFORMATION
  Report Type: 
  Country: None (occurrence: None)
  Receive Date: 20110224
  Receipt Date: 20110209
  Transmission Date: 20110831
  Serious: No
  Sender: FDA-Public Use
  Company Number: US-PFIZER INC-US-WYE-H15550710

PATIENT
  Sex: Female
  Weight: 93 kg

DRUGS (14)
  1. SERTRALINE HYDROCHLORIDE [Suspect]
     Dosage: ^STARTED WEANING OFF UNTIL 25 MG DAILY^
     Route: 065
  2. CELECOXIB [Concomitant]
  3. PRISTIQ [Suspect]
     Dosage: 50 MG, 1X/3 DAY
     Route: 065
     Dates: start: 20100601, end: 20100601
  4. OLMESARTAN MEDOXOMIL [Concomitant]
  5. ACETAMINOPHEN [Concomitant]
  6. NEURONTIN [Concomitant]
  7. PRANDIN [Concomitant]
  8. AMITRIPTYLINE HYDROCHLORIDE [Concomitant]
  9. PROTONIX [Concomitant]
  10. PRISTIQ [Suspect]
     Dosage: 50 MG, 1X/4 DAY
     Route: 065
     Dates: start: 20100607
  11. PRISTIQ [Suspect]
     Indication: DEPRESSION
     Dosage: 50 MG, 1X/DAY
     Route: 065
     Dates: start: 20100524
  12. PRISTIQ [Suspect]
     Dosage: 50 MG,1X/2 DAY
     Route: 065
     Dates: start: 20100601, end: 20100601
  13. SERTRALINE HYDROCHLORIDE [Suspect]
     Indication: DEPRESSION
     Dosage: ^HIGH DOSE^
     Route: 065
  14. CALCIUM PHOSPHATE/CALCIUM SODIUM LACTATE/ERGOCALCIFEROL [Concomitant]

REACTIONS (4)
  - MOOD ALTERED [None]
  - FATIGUE [None]
  - IRRITABILITY [None]
  - AGITATION [None]
